FAERS Safety Report 9834346 (Version 1)
Quarter: 2014Q1

REPORT INFORMATION
  Report Type: Spontaneous
  Country: US (occurrence: US)
  Receive Date: 20140122
  Receipt Date: 20140122
  Transmission Date: 20141002
  Serious: Yes (Other)
  Sender: FDA-Public Use
  Company Number: US-SA-2014SA006715

PATIENT
  Age: 58 Year
  Sex: Female
  Weight: 79 kg

DRUGS (19)
  1. FABRAZYME [Suspect]
     Indication: FABRY^S DISEASE
     Dosage: DOSE : 100 MG QOW
     Route: 042
     Dates: start: 20130819
  2. FABRAZYME [Suspect]
     Indication: FABRY^S DISEASE
     Dosage: DOSE : 100 MG QOW
     Route: 042
     Dates: start: 20130819
  3. HEPARIN [Concomitant]
  4. NORMAL SALINE [Concomitant]
  5. SODIUM CHLORIDE [Concomitant]
  6. WATER [Concomitant]
  7. EPIPEN [Concomitant]
  8. PANTOPRAZOLE [Concomitant]
  9. ELMIRON [Concomitant]
  10. NORVASC [Concomitant]
  11. SYNTHROID [Concomitant]
  12. TRAMADOL [Concomitant]
  13. ETODOLAC [Concomitant]
  14. GABAPENTIN [Concomitant]
  15. CITALOPRAM [Concomitant]
  16. CRESTOR [Concomitant]
  17. METOPROLOL [Concomitant]
  18. PLAVIX [Concomitant]
  19. NORCO [Concomitant]

REACTIONS (1)
  - Cystitis [Unknown]
